FAERS Safety Report 8408776-3 (Version None)
Quarter: 2012Q2

REPORT INFORMATION
  Report Type: 
  Country: None (occurrence: None)
  Receive Date: 20120604
  Receipt Date: 20120522
  Transmission Date: 20120825
  Serious: Yes (Hospitalization)
  Sender: FDA-Public Use
  Company Number: US-ELI_LILLY_AND_COMPANY-US201203004300

PATIENT
  Sex: Female
  Weight: 99.5 kg

DRUGS (1)
  1. ZYPREXA RELPREVV [Suspect]
     Indication: PSYCHOTIC DISORDER
     Dosage: 300 MG, EVERY 2 WEEKS
     Route: 030
     Dates: start: 20120120

REACTIONS (2)
  - PSYCHIATRIC DECOMPENSATION [None]
  - CARDIAC DISORDER [None]
